FAERS Safety Report 5222847-4 (Version None)
Quarter: 2007Q1

REPORT INFORMATION
  Report Type: 
  Country: None (occurrence: None)
  Receive Date: 20070129
  Receipt Date: 20070117
  Transmission Date: 20070707
  Serious: Yes (Hospitalization)
  Sender: FDA-Public Use
  Company Number: FRASAN06205

PATIENT
  Age: 41 Year
  Sex: Male

DRUGS (1)
  1. AMOXICILLIN + CLAVULANIC ACID [Suspect]
     Indication: BRONCHITIS
     Dosage: 3UNIT PER DAY
     Route: 048

REACTIONS (2)
  - SENSE OF OPPRESSION [None]
  - URTICARIA GENERALISED [None]
